FAERS Safety Report 24954240 (Version 1)
Quarter: 2025Q1

REPORT INFORMATION
  Report Type: Spontaneous
  Country: US (occurrence: US)
  Receive Date: 20250211
  Receipt Date: 20250211
  Transmission Date: 20250408
  Serious: Yes (Death, Hospitalization, Other)
  Sender: ALEMBIC
  Company Number: US-ALEMBIC PHARMACUETICALS LIMITED-2025SCAL000077

PATIENT

DRUGS (2)
  1. LINEZOLID [Suspect]
     Active Substance: LINEZOLID
     Indication: Enterococcal infection
     Route: 048
  2. CEFDINIR [Concomitant]
     Active Substance: CEFDINIR
     Indication: Escherichia infection
     Route: 065

REACTIONS (6)
  - Lactic acidosis [Fatal]
  - Hypoglycaemia [Fatal]
  - Pancreatitis [Fatal]
  - Hepatic steatosis [Fatal]
  - Lethargy [Fatal]
  - Blood pressure decreased [Fatal]
